FAERS Safety Report 8175383-X (Version None)
Quarter: 2012Q1

REPORT INFORMATION
  Report Type: 
  Country: None (occurrence: None)
  Receive Date: 20120229
  Receipt Date: 20120222
  Transmission Date: 20120608
  Serious: Yes (Other)
  Sender: FDA-Public Use
  Company Number: BR-PFIZER INC-2012047697

PATIENT
  Age: 74 Year
  Sex: Female

DRUGS (3)
  1. ATENOLOL [Concomitant]
     Dosage: HALF TABLET DAILY
     Dates: start: 20100801
  2. LIPITOR [Suspect]
     Indication: CARDIOVASCULAR DISORDER
     Dosage: 20 MG, 1X/DAY
     Route: 048
     Dates: start: 20100801, end: 20120214
  3. AAS INFANTIL [Concomitant]
     Indication: ANTICOAGULANT THERAPY
     Dosage: ONE TABLET DAILY
     Dates: start: 20100801

REACTIONS (10)
  - ABDOMINAL PAIN [None]
  - DIABETES MELLITUS [None]
  - RASH MACULAR [None]
  - DIZZINESS [None]
  - EXPIRED DRUG ADMINISTERED [None]
  - MALAISE [None]
  - FOOD POISONING [None]
  - DEHYDRATION [None]
  - VOMITING [None]
  - DIARRHOEA [None]
